FAERS Safety Report 4534353-0 (Version None)
Quarter: 2004Q4

REPORT INFORMATION
  Report Type: 
  Country: None (occurrence: None)
  Receive Date: 20041220
  Receipt Date: 20041220
  Transmission Date: 20050328
  Serious: Yes (Hospitalization, Disabling)
  Sender: FDA-Public Use
  Company Number: None

PATIENT
  Age: 74 Year
  Sex: Male
  Weight: 70.3075 kg

DRUGS (1)
  1. COREG [Suspect]
     Dosage: 25 MG DAILY ORAL
     Route: 048
     Dates: start: 20041013, end: 20041210

REACTIONS (4)
  - CARDIAC DISORDER [None]
  - DECREASED ACTIVITY [None]
  - FATIGUE [None]
  - NAUSEA [None]
